FAERS Safety Report 4334882-9 (Version None)
Quarter: 2004Q2

REPORT INFORMATION
  Report Type: 
  Country: None (occurrence: None)
  Receive Date: 20040405
  Receipt Date: 20040329
  Transmission Date: 20050107
  Serious: Yes (Hospitalization)
  Sender: FDA-Public Use
  Company Number: 2004021722

PATIENT
  Sex: Male

DRUGS (1)
  1. SUDAFED 12 HOUR [Suspect]
     Indication: SINUS CONGESTION
     Dosage: 1 TABLET, UNSPECIFIED FREQUENCY, ORAL
     Route: 048
     Dates: start: 20040328

REACTIONS (2)
  - LOSS OF CONSCIOUSNESS [None]
  - NAUSEA [None]
